FAERS Safety Report 13437088 (Version 1)
Quarter: 2017Q2

REPORT INFORMATION
  Report Type: Spontaneous
  Country: US (occurrence: US)
  Receive Date: 20170413
  Receipt Date: 20170413
  Transmission Date: 20170830
  Serious: No
  Sender: FDA-Public Use
  Company Number: US-SA-2016SA103035

PATIENT
  Age: 87 Year
  Sex: Female

DRUGS (2)
  1. ALLEGRA D-12 HOUR [Suspect]
     Active Substance: FEXOFENADINE HYDROCHLORIDE\PSEUDOEPHEDRINE HYDROCHLORIDE
     Indication: SINUS DISORDER
     Route: 065
  2. ALLEGRA D-12 HOUR [Suspect]
     Active Substance: FEXOFENADINE HYDROCHLORIDE\PSEUDOEPHEDRINE HYDROCHLORIDE
     Indication: SINUS DISORDER
     Route: 065
     Dates: start: 20160506, end: 20160526

REACTIONS (8)
  - Blood pressure increased [Unknown]
  - Tremor [Unknown]
  - Vision blurred [Unknown]
  - Feeling jittery [Unknown]
  - Feeling abnormal [Unknown]
  - Balance disorder [Unknown]
  - Dry mouth [Unknown]
  - Dyspnoea [Unknown]
